FAERS Safety Report 9401987 (Version 1)
Quarter: 2013Q3

REPORT INFORMATION
  Report Type: Spontaneous
  Country: US (occurrence: US)
  Receive Date: 20130716
  Receipt Date: 20130716
  Transmission Date: 20140515
  Serious: No
  Sender: FDA-Public Use
  Company Number: US-PFIZER INC-2013205404

PATIENT
  Age: 54 Year
  Sex: Female

DRUGS (5)
  1. XELJANZ [Suspect]
     Indication: RHEUMATOID ARTHRITIS
     Dosage: 5 MG 1 TABLET, TWICE DAILY
     Route: 048
     Dates: start: 201304, end: 20130701
  2. XELJANZ [Suspect]
     Dosage: 5 MG 1 TABLET ONCE DAILY
     Route: 048
     Dates: start: 20130711
  3. DIOVAN [Concomitant]
     Dosage: 320 MG
  4. LANTUS [Concomitant]
     Dosage: 28 IU, 1X/DAY AT HOUR OF SLEEP
     Route: 058
  5. DILTIAZEM HYDROCHLORIDE ER [Concomitant]
     Dosage: 360 MG

REACTIONS (1)
  - Blood creatinine increased [Unknown]
